FAERS Safety Report 6936138-4 (Version None)
Quarter: 2010Q3

REPORT INFORMATION
  Report Type: 
  Country: None (occurrence: None)
  Receive Date: 20100823
  Receipt Date: 20100818
  Transmission Date: 20110219
  Serious: Yes (Hospitalization)
  Sender: FDA-Public Use
  Company Number: GB-PERRIGO-10GB012247

PATIENT
  Sex: Male

DRUGS (2)
  1. NAPROXEN SODIUM 12063/0055 500 MG [Suspect]
     Indication: OSTEOARTHRITIS
     Dosage: 500 MG, BID
     Route: 048
     Dates: end: 20100722
  2. ACETAMINOPHEN AND CODEINE PHOSPHATE [Concomitant]
     Indication: OSTEOARTHRITIS
     Dosage: 2 DF, UNK
     Route: 048

REACTIONS (2)
  - DUODENAL ULCER [None]
  - MELAENA [None]
